FAERS Safety Report 25961255 (Version 1)
Quarter: 2025Q4

REPORT INFORMATION
  Report Type: Spontaneous
  Country: GB (occurrence: GB)
  Receive Date: 20251027
  Receipt Date: 20251027
  Transmission Date: 20260118
  Serious: Yes (Other)
  Sender: BAXTER
  Company Number: None

PATIENT
  Age: 36 Year
  Sex: Female
  Weight: 76 kg

DRUGS (2)
  1. METRONIDAZOLE [Suspect]
     Active Substance: METRONIDAZOLE
     Indication: Bacterial vaginosis
     Dosage: 3 X A DAY FOR 7 DAYS
     Route: 065
     Dates: start: 20251017, end: 20251020
  2. MOUNJARO [Concomitant]
     Active Substance: TIRZEPATIDE
     Indication: Obesity
     Dosage: UNK
     Route: 065
     Dates: start: 20241101

REACTIONS (3)
  - Back pain [Not Recovered/Not Resolved]
  - Sciatica [Not Recovered/Not Resolved]
  - Presyncope [Not Recovered/Not Resolved]

NARRATIVE: CASE EVENT DATE: 20251019
